FAERS Safety Report 20771166 (Version 1)
Quarter: 2022Q2

REPORT INFORMATION
  Report Type: Spontaneous
  Country: US (occurrence: US)
  Receive Date: 20220429
  Receipt Date: 20220429
  Transmission Date: 20220721
  Serious: No
  Sender: FDA-Public Use
  Company Number: US-PFIZER INC-202101037025

PATIENT
  Age: 65 Year
  Sex: Female

DRUGS (1)
  1. PREGABALIN [Suspect]
     Active Substance: PREGABALIN
     Indication: Psoriatic arthropathy
     Dosage: 165 MG

REACTIONS (4)
  - Drug ineffective [Unknown]
  - Paraesthesia [Unknown]
  - Feeling abnormal [Unknown]
  - Product use in unapproved indication [Unknown]
